FAERS Safety Report 5017900-4 (Version None)
Quarter: 2006Q2

REPORT INFORMATION
  Report Type: 
  Country: None (occurrence: None)
  Receive Date: 20060605
  Receipt Date: 20051229
  Transmission Date: 20061013
  Serious: Yes (Death, Hospitalization)
  Sender: FDA-Public Use
  Company Number: PHHO2005DK20262

PATIENT
  Age: 55 Year
  Sex: Female
  Weight: 49.6 kg

DRUGS (3)
  1. SANDIMMUNE [Suspect]
     Indication: LUNG TRANSPLANT
     Dosage: 225 MG/DAILY
     Route: 048
     Dates: start: 20050303, end: 20051228
  2. IMUREL [Concomitant]
     Dosage: 75 MG/DAILY
     Route: 048
     Dates: start: 20050305
  3. PREDNISOLONE [Concomitant]
     Dosage: 25 MG/DAILY
     Route: 048
     Dates: start: 20051226

REACTIONS (2)
  - COMPLICATIONS OF TRANSPLANTED LUNG [None]
  - PULMONARY FUNCTION TEST ABNORMAL [None]
